FAERS Safety Report 7801810-0 (Version None)
Quarter: 2011Q4

REPORT INFORMATION
  Report Type: 
  Country: None (occurrence: None)
  Receive Date: 20111007
  Receipt Date: 20111005
  Transmission Date: 20120403
  Serious: Yes (Other)
  Sender: FDA-Public Use
  Company Number: NZ-PFIZER INC-2011236899

PATIENT
  Age: 30 Year
  Sex: Male

DRUGS (2)
  1. INSULIN [Concomitant]
     Indication: TYPE 1 DIABETES MELLITUS
     Dosage: UNK
  2. VARENICLINE TARTRATE [Suspect]
     Indication: SMOKING CESSATION THERAPY
     Dosage: UNK

REACTIONS (7)
  - GINGIVAL BLEEDING [None]
  - ABSCESS [None]
  - GINGIVAL RECESSION [None]
  - GINGIVAL PAIN [None]
  - PERIODONTAL INFECTION [None]
  - PERIODONTAL DISEASE [None]
  - BLOOD GLUCOSE INCREASED [None]
